FAERS Safety Report 9034070 (Version 1)
Quarter: 2013Q1

REPORT INFORMATION
  Report Type: Spontaneous
  Country: US (occurrence: None)
  Receive Date: 20130116
  Receipt Date: 20130116
  Transmission Date: 20140127
  Serious: Yes (Death)
  Sender: FDA-Public Use
  Company Number: None

PATIENT
  Age: 66 Year
  Sex: Male
  Weight: 66.8 kg

DRUGS (1)
  1. WARFARIN [Suspect]
     Indication: ATRIAL FIBRILLATION
     Route: 048
     Dates: start: 20080212, end: 20120910

REACTIONS (6)
  - Haematemesis [None]
  - Aortic disorder [None]
  - Cardiac arrest [None]
  - Malignant neoplasm progression [None]
  - Haemorrhage [None]
  - Oesophageal carcinoma [None]
